FAERS Safety Report 8002994-4 (Version None)
Quarter: 2011Q4

REPORT INFORMATION
  Report Type: 
  Country: None (occurrence: None)
  Receive Date: 20111222
  Receipt Date: 20110719
  Transmission Date: 20120403
  Serious: No
  Sender: FDA-Public Use
  Company Number: US-GLAXOSMITHKLINE-A0937342A

PATIENT
  Age: 75 Year
  Sex: Male

DRUGS (4)
  1. TERAZOSIN HCL [Concomitant]
  2. ASPIRIN [Concomitant]
  3. AVODART [Suspect]
     Indication: BENIGN PROSTATIC HYPERPLASIA
     Dosage: .5CAP PER DAY
     Route: 048
     Dates: start: 20090101
  4. WARFARIN SODIUM [Concomitant]

REACTIONS (5)
  - ABDOMINAL DISCOMFORT [None]
  - DIZZINESS [None]
  - INSOMNIA [None]
  - PRODUCT QUALITY ISSUE [None]
  - THROAT IRRITATION [None]
